FAERS Safety Report 4592657-X (Version None)
Quarter: 2005Q1

REPORT INFORMATION
  Report Type: 
  Country: None (occurrence: None)
  Receive Date: 20050218
  Receipt Date: 20050204
  Transmission Date: 20050727
  Serious: Yes (Hospitalization)
  Sender: FDA-Public Use
  Company Number: 2005AP00997

PATIENT
  Age: 39 Year
  Sex: Male

DRUGS (1)
  1. LIGNOCAINE [Suspect]
     Indication: LOCAL ANAESTHESIA

REACTIONS (2)
  - SWELLING FACE [None]
  - TYPE IV HYPERSENSITIVITY REACTION [None]
